FAERS Safety Report 20524211 (Version 1)
Quarter: 2022Q1

REPORT INFORMATION
  Report Type: Spontaneous
  Country: FR (occurrence: FR)
  Receive Date: 20220228
  Receipt Date: 20220228
  Transmission Date: 20220424
  Serious: Yes (Other)
  Sender: FDA-Public Use
  Company Number: FR-AFSSAPS-BX20221391

PATIENT
  Age: 50 Year
  Sex: Female
  Weight: 145 kg

DRUGS (2)
  1. LIDOCAINE [Suspect]
     Active Substance: LIDOCAINE
     Indication: Pain
     Dosage: 0.73 MILLIGRAM/KILOGRAM, EVERY HOUR
     Route: 040
     Dates: start: 20220125, end: 20220127
  2. ONDANSETRON [Suspect]
     Active Substance: ONDANSETRON
     Indication: Nausea
     Dosage: 8 MILLIGRAM, 1 TOTAL
     Route: 042
     Dates: start: 20220127, end: 20220127

REACTIONS (1)
  - Ventricular tachycardia [Recovering/Resolving]

NARRATIVE: CASE EVENT DATE: 20220127
